FAERS Safety Report 12788697 (Version 1)
Quarter: 2016Q3

REPORT INFORMATION
  Report Type: Spontaneous
  Country: ES (occurrence: ES)
  Receive Date: 20160928
  Receipt Date: 20160928
  Transmission Date: 20161109
  Serious: Yes (Other)
  Sender: FDA-Public Use
  Company Number: ES-APOTEX-2016AP012169

PATIENT
  Age: 66 Year
  Sex: Female

DRUGS (1)
  1. ACIDO IBANDRONICO APOTEX COMPRIMIDOS RECUBIERTOS CON PELICULA EFG [Suspect]
     Active Substance: IBANDRONIC ACID
     Indication: PRODUCT USED FOR UNKNOWN INDICATION
     Dosage: UNK, Q.M.T.
     Route: 048

REACTIONS (2)
  - Osteonecrosis of jaw [Unknown]
  - Device failure [Unknown]
